FAERS Safety Report 7788353-8 (Version None)
Quarter: 2011Q3

REPORT INFORMATION
  Report Type: 
  Country: None (occurrence: None)
  Receive Date: 20110929
  Receipt Date: 20110929
  Transmission Date: 20111222
  Serious: No
  Sender: FDA-Public Use
  Company Number: None

PATIENT
  Age: 69 Year
  Sex: Female

DRUGS (1)
  1. PREVACID [Suspect]
     Indication: LIVER INJURY
     Dates: start: 20091203, end: 20100103

REACTIONS (5)
  - SMOOTH MUSCLE ANTIBODY POSITIVE [None]
  - JAUNDICE [None]
  - HEPATIC STEATOSIS [None]
  - CHOLESTASIS [None]
  - ANTINUCLEAR ANTIBODY POSITIVE [None]
